FAERS Safety Report 4527791-3 (Version None)
Quarter: 2004Q4

REPORT INFORMATION
  Report Type: 
  Country: None (occurrence: None)
  Receive Date: 20041123
  Receipt Date: 20031219
  Transmission Date: 20050328
  Serious: Yes (Hospitalization)
  Sender: FDA-Public Use
  Company Number: ATO-03-0827(0)

PATIENT
  Age: 62 Year
  Sex: Female

DRUGS (1)
  1. TRISENOX [Suspect]
     Indication: ACUTE MYELOID LEUKAEMIA
     Dosage: 4 DOSES (0.25 MG/KG,DAILY),IVI
     Dates: start: 20031208

REACTIONS (4)
  - HYPOXIA [None]
  - LEUKOCYTOSIS [None]
  - LUNG INFILTRATION [None]
  - PYREXIA [None]
